FAERS Safety Report 7582906-8 (Version None)
Quarter: 2011Q2

REPORT INFORMATION
  Report Type: 
  Country: None (occurrence: None)
  Receive Date: 20110630
  Receipt Date: 20110622
  Transmission Date: 20111010
  Serious: Yes (Other)
  Sender: FDA-Public Use
  Company Number: US-US-EMD SERONO, INC.-7066996

PATIENT
  Sex: Male

DRUGS (4)
  1. REBIF [Suspect]
     Indication: PRODUCT USED FOR UNKNOWN INDICATION
     Route: 058
     Dates: start: 20110419
  2. IBUPROFEN [Concomitant]
  3. ZOLOFT [Concomitant]
  4. CYMBALTA [Concomitant]

REACTIONS (5)
  - INJECTION SITE RASH [None]
  - COGNITIVE DISORDER [None]
  - INJECTION SITE PAIN [None]
  - SYSTEMIC LUPUS ERYTHEMATOSUS [None]
  - MUSCULAR WEAKNESS [None]
